FAERS Safety Report 7525171-X (Version None)
Quarter: 2011Q2

REPORT INFORMATION
  Report Type: 
  Country: None (occurrence: None)
  Receive Date: 20110526
  Receipt Date: 20110511
  Transmission Date: 20111010
  Serious: Yes (Hospitalization)
  Sender: FDA-Public Use
  Company Number: CIP11000559

PATIENT
  Age: 64 Year
  Sex: Female
  Weight: 55 kg

DRUGS (6)
  1. IBUPROFEN [Concomitant]
  2. FOSAMAX [Suspect]
     Dosage: 70 MG, ORAL
     Route: 048
     Dates: start: 20050211
  3. ACTONEL [Suspect]
     Dosage: 35 MG, ORAL
     Route: 048
     Dates: start: 20021101
  4. LIPITOR [Concomitant]
  5. NAPROXEN [Concomitant]
  6. SKELAXIN /00611501/ (METAXALONE) [Concomitant]

REACTIONS (6)
  - FRACTURE DISPLACEMENT [None]
  - FALL [None]
  - ARTHRALGIA [None]
  - IMPAIRED HEALING [None]
  - FEMUR FRACTURE [None]
  - URINARY TRACT INFECTION [None]
